FAERS Safety Report 8780995 (Version 5)
Quarter: 2013Q2

REPORT INFORMATION
  Report Type: Spontaneous
  Country: US (occurrence: US)
  Receive Date: 20120913
  Receipt Date: 20130412
  Transmission Date: 20140414
  Serious: No
  Sender: FDA-Public Use
  Company Number: US-009507513-1209USA002368

PATIENT
  Age: 19 Year
  Sex: Female
  Weight: 62.59 kg

DRUGS (3)
  1. IMPLANON [Suspect]
     Indication: CONTRACEPTION
     Dosage: 68 MG, 3 YEARS IMPLANT
     Route: 059
     Dates: start: 20120810
  2. IMPLANON [Suspect]
     Dosage: 68 MG,  3 YEARS IMPLANT
     Route: 059
     Dates: start: 20120831
  3. SYNTHROID [Concomitant]

REACTIONS (3)
  - Device difficult to use [Recovered/Resolved]
  - Device deployment issue [Recovered/Resolved]
  - No adverse event [Unknown]
